FAERS Safety Report 24114063 (Version 1)
Quarter: 2024Q3

REPORT INFORMATION
  Report Type: Spontaneous
  Country: FR (occurrence: FR)
  Receive Date: 20240720
  Receipt Date: 20240720
  Transmission Date: 20241017
  Serious: Yes (Other)
  Sender: CELLTRION
  Company Number: FR-CELLTRION INC.-2024FR017167

PATIENT

DRUGS (5)
  1. RITUXIMAB [Suspect]
     Active Substance: RITUXIMAB
     Indication: Pleural mesothelioma
     Dosage: 1000MG 14 DAYS APART, 1 CYCLE.
  2. CYCLOPHOSPHAMIDE [Suspect]
     Active Substance: CYCLOPHOSPHAMIDE
     Indication: Pleural mesothelioma
     Dosage: 1000MG MONTHLY 5 CYCLES
  3. METHYLPREDNISOLONE [Concomitant]
     Active Substance: METHYLPREDNISOLONE
     Indication: Mononeuropathy multiplex
     Dosage: 120 MG DAILY FOR 3 DAYS, 240 MG DAILY FOR ANOTHER 3 DAYS
     Route: 042
  4. PREDNISONE [Concomitant]
     Active Substance: PREDNISONE
     Indication: Mononeuropathy multiplex
     Dosage: 1 MG/KG, EVERY 1 DAY
     Route: 048
  5. PREDNISONE [Concomitant]
     Active Substance: PREDNISONE
     Dosage: 5 MG/WEEK

REACTIONS (3)
  - Disease progression [Unknown]
  - Treatment failure [Unknown]
  - Intentional product use issue [Unknown]
